FAERS Safety Report 5738975-0 (Version None)
Quarter: 2008Q2

REPORT INFORMATION
  Report Type: 
  Country: None (occurrence: None)
  Receive Date: 20080515
  Receipt Date: 20080508
  Transmission Date: 20081010
  Serious: Yes (Other)
  Sender: FDA-Public Use
  Company Number: US-ASTRAZENECA-2008UW09462

PATIENT
  Age: 7 Year
  Sex: Male

DRUGS (5)
  1. PULMICORT RESPULES [Suspect]
     Indication: HYPERSENSITIVITY
     Route: 055
     Dates: start: 20080506
  2. PULMICORT RESPULES [Suspect]
     Indication: COUGH
     Route: 055
     Dates: start: 20080506
  3. CONCETA [Concomitant]
  4. NASONEX [Concomitant]
  5. SINGULAIR [Concomitant]

REACTIONS (2)
  - BLOOD GLUCOSE INCREASED [None]
  - PYREXIA [None]
